FAERS Safety Report 12001033 (Version 1)
Quarter: 2016Q1

REPORT INFORMATION
  Report Type: Spontaneous
  Country: CA (occurrence: CA)
  Receive Date: 20160204
  Receipt Date: 20160204
  Transmission Date: 20160526
  Serious: Yes (Other)
  Sender: FDA-Public Use
  Company Number: CA-SHIRE-CA201600896

PATIENT
  Age: 56 Year
  Sex: Female

DRUGS (1)
  1. VYVANSE [Suspect]
     Active Substance: LISDEXAMFETAMINE DIMESYLATE
     Indication: ATTENTION DEFICIT/HYPERACTIVITY DISORDER
     Dosage: 60 MG, 1X/DAY:QD
     Route: 048

REACTIONS (7)
  - Drug withdrawal syndrome [Unknown]
  - Heart rate increased [Unknown]
  - Chest pain [Unknown]
  - Anxiety [Unknown]
  - Therapeutic response unexpected [Unknown]
  - Nausea [Unknown]
  - Drug dose omission [Unknown]
